FAERS Safety Report 5064742-X (Version None)
Quarter: 2006Q3

REPORT INFORMATION
  Report Type: 
  Country: None (occurrence: None)
  Receive Date: 20060728
  Receipt Date: 20060724
  Transmission Date: 20061208
  Serious: Yes (Other)
  Sender: FDA-Public Use
  Company Number: US-SANOFI-SYNTHELABO-A03200604643

PATIENT
  Sex: Female

DRUGS (2)
  1. AMBIEN [Suspect]
     Indication: INSOMNIA
     Dosage: 1/2 TO 1 TABLET HS PRN
     Route: 048
     Dates: start: 20060501, end: 20060722
  2. ZOLOFT [Concomitant]
     Dosage: UNK
     Route: 048

REACTIONS (8)
  - AGITATION [None]
  - CONFUSIONAL STATE [None]
  - CRYING [None]
  - DYSPHASIA [None]
  - IMPAIRED DRIVING ABILITY [None]
  - ROAD TRAFFIC ACCIDENT [None]
  - SLEEP WALKING [None]
  - TREMOR [None]
